FAERS Safety Report 10084087 (Version 3)
Quarter: 2014Q2

REPORT INFORMATION
  Report Type: Spontaneous
  Country: JP (occurrence: JP)
  Receive Date: 20140417
  Receipt Date: 20140425
  Transmission Date: 20141212
  Serious: No
  Sender: FDA-Public Use
  Company Number: JP-ABBVIE-14P-087-1194862-00

PATIENT
  Age: 59 Year
  Sex: Female

DRUGS (3)
  1. HUMIRA [Suspect]
     Indication: CROHN^S DISEASE
     Route: 058
     Dates: start: 20130912, end: 20130912
  2. HUMIRA [Suspect]
  3. HUMIRA [Suspect]

REACTIONS (2)
  - Tumour marker increased [Not Recovered/Not Resolved]
  - Anal stenosis [Not Recovered/Not Resolved]
